FAERS Safety Report 10903231 (Version 1)
Quarter: 2015Q1

REPORT INFORMATION
  Report Type: Spontaneous
  Country: US (occurrence: US)
  Receive Date: 20150311
  Receipt Date: 20150311
  Transmission Date: 20150721
  Serious: Yes (Hospitalization)
  Sender: FDA-Public Use
  Company Number: US-AUROBINDO-AUR-APL-2015-01984

PATIENT
  Age: 78 Year
  Sex: Female

DRUGS (3)
  1. TRIMETHOPRIM+SULFAMETHOXAZOLE [Suspect]
     Active Substance: SULFAMETHOXAZOLE\TRIMETHOPRIM
     Indication: ERYTHEMA
     Dosage: UNK, TWO TIMES A DAY
     Route: 065
  2. DECADRON [Concomitant]
     Active Substance: DEXAMETHASONE
     Indication: THROMBOCYTOPENIA
     Dosage: 40 MG, DAILY
     Route: 065
  3. TRIMETHOPRIM+SULFAMETHOXAZOLE [Suspect]
     Active Substance: SULFAMETHOXAZOLE\TRIMETHOPRIM
     Indication: OEDEMA

REACTIONS (10)
  - Purpura [Unknown]
  - Asthenia [Unknown]
  - Conjunctival haemorrhage [Unknown]
  - Melaena [Unknown]
  - Fatigue [Unknown]
  - Ocular hyperaemia [Unknown]
  - Extra dose administered [Unknown]
  - Petechiae [Recovering/Resolving]
  - Rash [Recovering/Resolving]
  - Thrombocytopenia [Unknown]
